FAERS Safety Report 24237812 (Version 4)
Quarter: 2025Q3

REPORT INFORMATION
  Report Type: Report from Study
  Country: US (occurrence: US)
  Receive Date: 20240822
  Receipt Date: 20250802
  Transmission Date: 20251021
  Serious: Yes (Other)
  Sender: ALEXION PHARMACEUTICALS
  Company Number: US-AstraZeneca-CH-00687787A

PATIENT
  Sex: Female

DRUGS (3)
  1. STRENSIQ [Suspect]
     Active Substance: ASFOTASE ALFA
     Indication: Hypophosphatasia
  2. STRENSIQ [Suspect]
     Active Substance: ASFOTASE ALFA
     Dosage: 60 MILLILITER TWO DOSES, TIW
     Route: 065
  3. STRENSIQ [Suspect]
     Active Substance: ASFOTASE ALFA
     Dosage: 70 MILLILITER TWO DOSES, TIW
     Route: 065

REACTIONS (4)
  - Neuropathy peripheral [Recovered/Resolved]
  - Nausea [Recovered/Resolved]
  - Fatigue [Recovered/Resolved]
  - Arthralgia [Recovered/Resolved]
